FAERS Safety Report 7670114-1 (Version None)
Quarter: 2011Q3

REPORT INFORMATION
  Report Type: 
  Country: None (occurrence: None)
  Receive Date: 20110808
  Receipt Date: 20110803
  Transmission Date: 20111222
  Serious: Yes (Death)
  Sender: FDA-Public Use
  Company Number: PHHY2011HU69848

PATIENT
  Sex: Female
  Weight: 65 kg

DRUGS (1)
  1. LETROZOLE [Suspect]
     Indication: BREAST CANCER

REACTIONS (2)
  - BLOOD PRESSURE DECREASED [None]
  - DEATH [None]
